FAERS Safety Report 13263332 (Version 1)
Quarter: 2017Q1

REPORT INFORMATION
  Report Type: Report from Study
  Country: BR (occurrence: BR)
  Receive Date: 20170223
  Receipt Date: 20170223
  Transmission Date: 20170428
  Serious: Yes (Hospitalization)
  Sender: FDA-Public Use
  Company Number: BR-UCBSA-2017006917

PATIENT
  Age: 34 Year
  Sex: Female
  Weight: 83 kg

DRUGS (9)
  1. CERTOLIZUMAB PEGOL [Suspect]
     Active Substance: CERTOLIZUMAB PEGOL
     Indication: RHEUMATOID ARTHRITIS
     Dosage: 400 MG, MONTHLY (QM)
     Dates: start: 20150520
  2. OMEPRAZOLE. [Concomitant]
     Active Substance: OMEPRAZOLE
     Indication: GASTRITIS
     Dosage: 40 MG, ONCE DAILY (QD)
     Route: 048
  3. FOLIC ACID. [Concomitant]
     Active Substance: FOLIC ACID
     Indication: RHEUMATOID ARTHRITIS
     Dosage: 1 DF, 2X/WEEK
     Route: 048
  4. PREDSIM [Concomitant]
     Active Substance: PREDNISOLONE
     Indication: RHEUMATOID ARTHRITIS
     Dosage: 20 MG, WEEKLY (QW)
     Route: 048
     Dates: start: 2016
  5. LOSARTAN. [Concomitant]
     Active Substance: LOSARTAN
     Indication: HYPERTENSION
     Dosage: 50 MG, ONCE DAILY (QD)
     Route: 048
     Dates: start: 2009
  6. METHOTREXATE. [Concomitant]
     Active Substance: METHOTREXATE
     Indication: RHEUMATOID ARTHRITIS
     Dosage: 5 MG, 2X/WEEK
     Route: 048
  7. DIPYRONE [Concomitant]
     Active Substance: DIPYRONE
     Indication: PAIN
     Dosage: 1 DF, 3X/DAY (TID)
     Route: 048
     Dates: start: 201606, end: 201702
  8. VIMOVO [Concomitant]
     Active Substance: ESOMEPRAZOLE MAGNESIUM\NAPROXEN
     Indication: PAIN
     Dosage: 500 MG, 2X/DAY (BID)
     Route: 048
     Dates: start: 201606, end: 201612
  9. INDAPAMIDE. [Concomitant]
     Active Substance: INDAPAMIDE
     Indication: HYPERTENSION
     Dosage: 1.5 MG, ONCE DAILY (QD)
     Route: 048
     Dates: start: 2006

REACTIONS (3)
  - Tendon injury [Recovered/Resolved]
  - Glucose tolerance impaired [Not Recovered/Not Resolved]
  - Knee deformity [Recovered/Resolved]

NARRATIVE: CASE EVENT DATE: 201606
